FAERS Safety Report 19492933 (Version 6)
Quarter: 2022Q1

REPORT INFORMATION
  Report Type: Report from Study
  Country: CO (occurrence: CO)
  Receive Date: 20210705
  Receipt Date: 20220122
  Transmission Date: 20220423
  Serious: Yes (Other)
  Sender: FDA-Public Use
  Company Number: NVSC2021CO144878

PATIENT
  Sex: Female

DRUGS (1)
  1. COSENTYX [Suspect]
     Active Substance: SECUKINUMAB
     Indication: Psoriatic arthropathy
     Dosage: 300 MG, QMO (ONCE MONTHLY)
     Route: 058

REACTIONS (4)
  - Visual impairment [Unknown]
  - Neoplasm [Unknown]
  - Rheumatic disorder [Unknown]
  - Weight decreased [Unknown]
